FAERS Safety Report 17414914 (Version 4)
Quarter: 2020Q2

REPORT INFORMATION
  Report Type: Spontaneous
  Country: US (occurrence: US)
  Receive Date: 20200213
  Receipt Date: 20200515
  Transmission Date: 20200713
  Serious: No
  Sender: FDA-Public Use
  Company Number: US-JNJFOC-20200217266

PATIENT
  Age: 37 Year
  Sex: Female

DRUGS (6)
  1. TOPAMAX [Suspect]
     Active Substance: TOPIRAMATE
     Indication: COMPULSIONS
  2. TOPAMAX [Suspect]
     Active Substance: TOPIRAMATE
     Indication: BINGE EATING
     Route: 048
     Dates: start: 201708, end: 20191012
  3. TOPAMAX [Suspect]
     Active Substance: TOPIRAMATE
     Indication: OBESITY
     Dosage: THERAPY START DATE ALSO REPORTED AS /MAR/2015
     Route: 048
     Dates: start: 201502, end: 201606
  4. TOPAMAX [Suspect]
     Active Substance: TOPIRAMATE
     Indication: AFFECTIVE DISORDER
  5. LEVORA [Concomitant]
     Active Substance: ETHINYL ESTRADIOL\LEVONORGESTREL
     Indication: CONTRACEPTION
     Route: 065
     Dates: start: 2000
  6. CALCIUM W/MAGNESIUM [Concomitant]
     Active Substance: CALCIUM\MAGNESIUM
     Indication: PRODUCT USED FOR UNKNOWN INDICATION
     Route: 065

REACTIONS (11)
  - Product use in unapproved indication [Unknown]
  - Off label use [Unknown]
  - Adverse drug reaction [Unknown]
  - Fatigue [Recovered/Resolved]
  - Alopecia [Unknown]
  - Feeling abnormal [Recovered/Resolved]
  - Collagen disorder [Not Recovered/Not Resolved]
  - Weight decreased [Unknown]
  - Skin wrinkling [Unknown]
  - Osteoporosis [Unknown]
  - Paraesthesia [Recovered/Resolved]

NARRATIVE: CASE EVENT DATE: 201908
